FAERS Safety Report 5823466-9 (Version None)
Quarter: 2008Q3

REPORT INFORMATION
  Report Type: 
  Country: None (occurrence: None)
  Receive Date: 20080725
  Receipt Date: 20080401
  Transmission Date: 20090109
  Serious: No
  Sender: FDA-Public Use
  Company Number: US-ABBOTT-08P-163-0445316-00

PATIENT
  Sex: Female

DRUGS (11)
  1. NORVIR [Suspect]
     Indication: HIV TEST POSITIVE
     Route: 048
     Dates: start: 20000101
  2. LESTA [Concomitant]
     Indication: BLOOD CHOLESTEROL
     Route: 048
  3. CIMETIDINE [Concomitant]
     Indication: DYSPEPSIA
     Route: 048
  4. NEVIRAPINE [Concomitant]
     Indication: HIV TEST POSITIVE
     Route: 048
  5. SAQUINAVIR MESILATE [Concomitant]
     Indication: HIV TEST POSITIVE
     Route: 048
  6. PRAVASTINE [Concomitant]
     Indication: BLOOD CHOLESTEROL
     Route: 048
  7. LAMIVUDINE + ZIDOVUDINE [Concomitant]
     Indication: HIV TEST POSITIVE
     Route: 048
  8. ALPRAZOLAM [Concomitant]
     Indication: ANXIETY
     Route: 048
  9. PROPACET 100 [Concomitant]
     Indication: PAIN
     Route: 048
  10. CARISOPRODOL [Concomitant]
     Indication: PAIN
     Route: 048
  11. MORPHINE [Concomitant]
     Indication: PAIN
     Route: 048

REACTIONS (1)
  - NAUSEA [None]
